FAERS Safety Report 4674716-6 (Version None)
Quarter: 2005Q2

REPORT INFORMATION
  Report Type: 
  Country: None (occurrence: None)
  Receive Date: 20050526
  Receipt Date: 20050201
  Transmission Date: 20051028
  Serious: Yes (Death, Disabling)
  Sender: FDA-Public Use
  Company Number: PHBS2005IT01703

PATIENT
  Age: 68 Year
  Sex: Male

DRUGS (12)
  1. CARBOPLATIN [Concomitant]
     Route: 065
  2. VINORELBINE TARTRATE [Concomitant]
     Route: 065
  3. FARLUTAL [Concomitant]
     Route: 065
  4. ZOMETA [Suspect]
     Dosage: 4 MG, QMO
     Route: 042
     Dates: start: 20011126, end: 20030311
  5. AREDIA [Suspect]
     Dosage: 90 MG, QMO
     Route: 042
     Dates: start: 20010913, end: 20011105
  6. PANTECTA [Concomitant]
     Route: 065
  7. CONTRAMAL [Concomitant]
     Route: 065
  8. G-CSF [Concomitant]
     Route: 065
  9. MS CONTIN [Concomitant]
     Route: 065
  10. VOLTAREN [Concomitant]
     Route: 065
  11. FLUOXETINE [Concomitant]
     Route: 065
  12. DELTACORTENE [Concomitant]
     Route: 065

REACTIONS (8)
  - INFLAMMATION [None]
  - MALIGNANT NEOPLASM PROGRESSION [None]
  - OSTEONECROSIS [None]
  - PAIN IN JAW [None]
  - PERIODONTAL DISEASE [None]
  - RENAL CANCER METASTATIC [None]
  - TOOTH EXTRACTION [None]
  - WOUND DEBRIDEMENT [None]
